FAERS Safety Report 14904344 (Version 1)
Quarter: 2018Q2

REPORT INFORMATION
  Report Type: Spontaneous
  Country: ES (occurrence: ES)
  Receive Date: 20180517
  Receipt Date: 20180517
  Transmission Date: 20180711
  Serious: Yes (Other)
  Sender: FDA-Public Use
  Company Number: ES-TEVA-2018-ES-893300

PATIENT
  Age: 62 Year
  Sex: Male
  Weight: 84 kg

DRUGS (1)
  1. AMOXICILINA (108A) [Suspect]
     Active Substance: AMOXICILLIN
     Route: 048
     Dates: start: 20180220

REACTIONS (1)
  - Angioedema [Unknown]

NARRATIVE: CASE EVENT DATE: 20180220
